FAERS Safety Report 24807778 (Version 1)
Quarter: 2025Q1

REPORT INFORMATION
  Report Type: Spontaneous
  Country: US (occurrence: US)
  Receive Date: 20250105
  Receipt Date: 20250105
  Transmission Date: 20250409
  Serious: No
  Sender: BRISTOL-MYERS SQUIBB COMPANY
  Company Number: US-BRISTOL-MYERS SQUIBB COMPANY-2024-199226

PATIENT
  Age: 53 Year
  Sex: Male
  Weight: 81.64 kg

DRUGS (1)
  1. SPRYCEL [Suspect]
     Active Substance: DASATINIB
     Indication: Haematological malignancy
     Route: 048
     Dates: start: 202407

REACTIONS (2)
  - Product physical issue [Unknown]
  - Product dispensing error [Unknown]
